FAERS Safety Report 11873288 (Version 2)
Quarter: 2016Q1

REPORT INFORMATION
  Report Type: Report from Study
  Country: GB (occurrence: GB)
  Receive Date: 20151228
  Receipt Date: 20160107
  Transmission Date: 20160526
  Serious: Yes (Other)
  Sender: FDA-Public Use
  Company Number: PHHY2015GB165511

PATIENT
  Age: 65 Year
  Sex: Female
  Weight: 58.4 kg

DRUGS (14)
  1. FOLINIC ACID [Concomitant]
     Active Substance: LEUCOVORIN
     Route: 065
     Dates: start: 20150702, end: 20150812
  2. IRINOTECAN [Suspect]
     Active Substance: IRINOTECAN
     Indication: COLORECTAL CANCER
     Dosage: DAY 1 OF EACH 14 DAY CYCLE
     Route: 042
     Dates: start: 20150702
  3. GAVISCON                           /00237601/ [Concomitant]
     Active Substance: ALUMINUM HYDROXIDE\MAGNESIUM CARBONATE
     Indication: NAUSEA
     Dosage: 10 ML, UNK
     Route: 048
     Dates: start: 20150622
  4. LOPERAMIDE [Concomitant]
     Active Substance: LOPERAMIDE
     Indication: STOMA CARE
     Dosage: 8 MG
     Route: 048
     Dates: start: 20150501
  5. DIORALYTE                          /06820901/ [Concomitant]
     Indication: STOMA CARE
     Dosage: 1 DF, QD
     Route: 048
     Dates: start: 20150501
  6. DIORALYTE                          /06820901/ [Concomitant]
     Route: 048
     Dates: start: 20150501
  7. DEXAMETHASONE. [Concomitant]
     Active Substance: DEXAMETHASONE
     Indication: PROPHYLAXIS OF NAUSEA AND VOMITING
     Route: 048
     Dates: start: 20150813, end: 20150815
  8. LANSOPRAZOLE. [Concomitant]
     Active Substance: LANSOPRAZOLE
     Indication: GASTROOESOPHAGEAL REFLUX PROPHYLAXIS
     Dosage: 30 MG, QD
     Route: 048
     Dates: start: 20150501
  9. FLUOROURACIL HEXAL [Suspect]
     Active Substance: FLUOROURACIL
     Dosage: OVER 46 HOURS; DAY 1 OF EACH 14 DAY CYCLE
     Route: 042
     Dates: start: 20150702
  10. VELIPARIB [Suspect]
     Active Substance: VELIPARIB
     Indication: COLORECTAL CANCER
     Dosage: DAY 2 THROUGH 5 OF EACH 21 DAY CYCLE
     Route: 048
     Dates: start: 20150702
  11. CODEINE PHOSPHATE [Concomitant]
     Active Substance: CODEINE PHOSPHATE
     Indication: STOMA CARE
     Dosage: 240 MG
     Route: 048
     Dates: start: 20150501
  12. METOCLOPRAMIDE. [Concomitant]
     Active Substance: METOCLOPRAMIDE
     Indication: NAUSEA
     Dosage: 10 MG, UNK
     Route: 048
     Dates: start: 20150703
  13. FLUOROURACIL HEXAL [Suspect]
     Active Substance: FLUOROURACIL
     Indication: COLORECTAL CANCER
     Dosage: OVER 15 MIN; DAY 1 OF EACH 21 DAY CYCLE
     Route: 040
     Dates: start: 20150702
  14. CYCLIZINE [Concomitant]
     Active Substance: CYCLIZINE
     Indication: NAUSEA
     Dosage: 50 MG, UNK
     Route: 048
     Dates: start: 20150812

REACTIONS (5)
  - Hyponatraemia [Recovered/Resolved]
  - Blood creatinine increased [Recovered/Resolved]
  - Toxicity to various agents [Unknown]
  - Renal impairment [Unknown]
  - Gastrointestinal stoma complication [Unknown]

NARRATIVE: CASE EVENT DATE: 20150825
